FAERS Safety Report 7512011-8 (Version None)
Quarter: 2011Q2

REPORT INFORMATION
  Report Type: 
  Country: None (occurrence: None)
  Receive Date: 20110519
  Receipt Date: 20110510
  Transmission Date: 20111010
  Serious: Yes (Hospitalization)
  Sender: FDA-Public Use
  Company Number: 1000020880

PATIENT
  Age: 81 Year
  Sex: Female

DRUGS (2)
  1. NEBIVOLOL HCL [Suspect]
     Dosage: ORAL
     Route: 048
  2. OLMESARTAN MEDOXOMIL AND HYDROCHLOROTHIZIDE [Suspect]
     Indication: HYPERTENSION
     Dosage: ORAL
     Route: 048
     Dates: end: 20110321

REACTIONS (3)
  - HYPONATRAEMIA [None]
  - HYPOKALAEMIA [None]
  - HYPERTENSIVE CRISIS [None]
